FAERS Safety Report 11969430 (Version 1)
Quarter: 2016Q1

REPORT INFORMATION
  Report Type: Spontaneous
  Country: CA (occurrence: CA)
  Receive Date: 20160128
  Receipt Date: 20160128
  Transmission Date: 20160526
  Serious: Yes (Other)
  Sender: FDA-Public Use
  Company Number: CA-ROCHE-1701451

PATIENT
  Age: 65 Year
  Sex: Male
  Weight: 88 kg

DRUGS (5)
  1. RITUXAN [Suspect]
     Active Substance: RITUXIMAB
     Indication: DIFFUSE LARGE B-CELL LYMPHOMA
     Route: 042
  2. TREANDA [Suspect]
     Active Substance: BENDAMUSTINE HYDROCHLORIDE
     Indication: DIFFUSE LARGE B-CELL LYMPHOMA
     Dosage: SINGLE USE VIAL, POWDER FOR SOLUTION INTRAVENOUS
     Route: 042
  3. ALTACE [Concomitant]
     Active Substance: RAMIPRIL
     Route: 065
  4. ASA [Concomitant]
     Active Substance: ASPIRIN
     Dosage: 0.5 OF DOSAGE FORM
     Route: 065
  5. BISOPROLOL [Concomitant]
     Active Substance: BISOPROLOL

REACTIONS (3)
  - Cough [Not Recovered/Not Resolved]
  - Pneumonia [Not Recovered/Not Resolved]
  - Infusion site extravasation [Not Recovered/Not Resolved]
